FAERS Safety Report 9721928 (Version 2)
Quarter: 2013Q4

REPORT INFORMATION
  Report Type: Spontaneous
  Country: CH (occurrence: CH)
  Receive Date: 20131202
  Receipt Date: 20131226
  Transmission Date: 20140711
  Serious: Yes (Hospitalization)
  Sender: FDA-Public Use
  Company Number: CH-ROCHE-1311525

PATIENT
  Age: 21 Year
  Sex: Female
  Weight: 74.2 kg

DRUGS (16)
  1. MABTHERA [Suspect]
     Indication: MULTIPLE SCLEROSIS
     Route: 041
     Dates: start: 20131108, end: 20131108
  2. MABTHERA [Suspect]
     Dosage: REPEATED ADMINISTRATION OF THE SAME DOSE WITHIN THE FRAME OF THE STANDARD PATTERN ON 29 NOVEMBER 201
     Route: 041
     Dates: start: 20131129
  3. LIMBITROL [Suspect]
     Indication: MULTIPLE SCLEROSIS
     Dosage: 1DF: 12.5/5 MG
     Route: 048
  4. SIRDALUD [Suspect]
     Indication: MULTIPLE SCLEROSIS
     Route: 048
  5. KETALAR [Suspect]
     Indication: MULTIPLE SCLEROSIS
     Dosage: 25 PER 1 AS NECESSARY?THE DOSAGE WAS CONTINUOUSLY INCREASED  UP TO 25 MG/H
     Route: 042
     Dates: start: 20131111, end: 20131120
  6. SOLU-MEDROL [Suspect]
     Indication: MULTIPLE SCLEROSIS
     Route: 041
     Dates: start: 20131029, end: 20131102
  7. SOLU-MEDROL [Suspect]
     Route: 041
     Dates: start: 20131104, end: 20131108
  8. PREDNISOLONE [Suspect]
     Indication: MULTIPLE SCLEROSIS
     Route: 048
     Dates: start: 20131110, end: 20131121
  9. NEURONTIN (GABAPENTIN) [Concomitant]
     Indication: MULTIPLE SCLEROSIS
     Route: 048
  10. NEURONTIN (GABAPENTIN) [Concomitant]
     Route: 048
  11. PANTOZOL (SWITZERLAND) [Concomitant]
     Route: 048
  12. CALCIMAGON-D3 [Concomitant]
     Route: 048
  13. FRAXIPARINE [Concomitant]
     Route: 065
     Dates: start: 20131130, end: 20131202
  14. HEPARIN SODIUM [Concomitant]
     Route: 065
     Dates: start: 20131030, end: 20131124
  15. METHADONE HYDROCHLORIDE [Concomitant]
     Dosage: 1 PER 5 AS NECESSARY
     Route: 048
  16. XYZAL [Concomitant]
     Route: 048
     Dates: start: 20131104, end: 20131117

REACTIONS (3)
  - Sinus tachycardia [Recovering/Resolving]
  - Dyspnoea [Not Recovered/Not Resolved]
  - Off label use [Unknown]
